FAERS Safety Report 16450957 (Version 3)
Quarter: 2019Q3

REPORT INFORMATION
  Report Type: Spontaneous
  Country: BE (occurrence: BE)
  Receive Date: 20190619
  Receipt Date: 20190725
  Transmission Date: 20191004
  Serious: Yes (Death, Life-Threatening, Hospitalization)
  Sender: FDA-Public Use
  Company Number: PHHY2019BE139541

PATIENT
  Age: 85 Year
  Sex: Male
  Weight: 70 kg

DRUGS (11)
  1. CEFTRIAXONE. [Interacting]
     Active Substance: CEFTRIAXONE
     Indication: HYPOXIA
  2. LASIX [Concomitant]
     Active Substance: FUROSEMIDE
     Indication: CARDIAC FAILURE
     Dosage: 125 MG, Q24H
     Route: 042
     Dates: start: 20190416, end: 20190417
  3. GLURENORM [Concomitant]
     Active Substance: GLIQUIDONE
     Indication: PRODUCT USED FOR UNKNOWN INDICATION
     Dosage: 0.5 DF, QD ( IN THE MORNING)
     Route: 065
  4. CEFTRIAXONE. [Suspect]
     Active Substance: CEFTRIAXONE
     Indication: PNEUMONIA
     Dosage: 2000 MG, QD
     Route: 042
     Dates: start: 20190415, end: 20190419
  5. BURINEX [Concomitant]
     Active Substance: BUMETANIDE
     Indication: PRODUCT USED FOR UNKNOWN INDICATION
     Dosage: 1.5 DF, BID (1 TABLET IN MORNING AND HALF AT NOON)
     Route: 065
  6. XARELTO [Interacting]
     Active Substance: RIVAROXABAN
     Indication: ATRIAL FIBRILLATION
     Dosage: 15 MG, QD (IN THE MORNING)
     Route: 048
  7. CORDARONE [Interacting]
     Active Substance: AMIODARONE HYDROCHLORIDE
     Indication: ATRIAL FIBRILLATION
     Dosage: 200 MG, QD (IN THE MORNING)
     Route: 048
  8. CALCIUM CARBONATE. [Concomitant]
     Active Substance: CALCIUM CARBONATE
     Indication: CHRONIC KIDNEY DISEASE
     Dosage: 1 G, QD (IN THE MORNING)
     Route: 048
  9. ACTRAPID [Concomitant]
     Active Substance: INSULIN HUMAN
     Indication: DIABETES MELLITUS
     Dosage: UNK
     Route: 065
  10. PRAVASTATINE [Concomitant]
     Active Substance: PRAVASTATIN
     Indication: PRODUCT USED FOR UNKNOWN INDICATION
     Dosage: 40 MG, QD (IN THE EVENING)
     Route: 065
  11. BICLAR [Concomitant]
     Active Substance: CLARITHROMYCIN
     Indication: PNEUMONIA
     Dosage: 500 MG, (EVERY 2 DAY)
     Route: 048
     Dates: start: 20190417, end: 20190419

REACTIONS (5)
  - Coagulopathy [Fatal]
  - Anticoagulation drug level increased [Fatal]
  - Hyperlactacidaemia [Fatal]
  - Liver disorder [Fatal]
  - Drug interaction [Fatal]

NARRATIVE: CASE EVENT DATE: 20190418
